FAERS Safety Report 4385204-9 (Version None)
Quarter: 2004Q2

REPORT INFORMATION
  Report Type: 
  Country: None (occurrence: None)
  Receive Date: 20040625
  Receipt Date: 20040616
  Transmission Date: 20050107
  Serious: Yes (Other)
  Sender: FDA-Public Use
  Company Number: US-MERCK-0406USA01645

PATIENT
  Age: 80 Year
  Sex: Male

DRUGS (1)
  1. ZOCOR [Suspect]
     Indication: BLOOD CHOLESTEROL INCREASED
     Route: 048
     Dates: start: 19991101, end: 20000401

REACTIONS (4)
  - ASTHENIA [None]
  - BALANCE DISORDER [None]
  - DIFFICULTY IN WALKING [None]
  - MYALGIA [None]
